FAERS Safety Report 15587844 (Version 3)
Quarter: 2019Q1

REPORT INFORMATION
  Report Type: Spontaneous
  Country: US (occurrence: US)
  Receive Date: 20181105
  Receipt Date: 20190122
  Transmission Date: 20190417
  Serious: No
  Sender: FDA-Public Use
  Company Number: US-PFIZER INC-2018439865

PATIENT
  Age: 64 Year
  Sex: Male
  Weight: 84 kg

DRUGS (3)
  1. TESTOSTERONE CIPIONATE [Suspect]
     Active Substance: TESTOSTERONE
     Indication: ROUTINE HEALTH MAINTENANCE
     Dosage: 0.8 ML, WEEKLY
     Dates: start: 2016
  2. TESTOSTERONE CIPIONATE [Suspect]
     Active Substance: TESTOSTERONE
     Indication: ASTHENIA
  3. TESTOSTERONE CIPIONATE [Suspect]
     Active Substance: TESTOSTERONE
     Indication: FATIGUE
     Dosage: 1 ML, WEEKLY
     Route: 030
     Dates: start: 2010

REACTIONS (5)
  - Product use in unapproved indication [Unknown]
  - Injection site erythema [Recovered/Resolved]
  - Product quality issue [Unknown]
  - Injection site swelling [Recovered/Resolved]
  - Injection site pain [Recovered/Resolved]

NARRATIVE: CASE EVENT DATE: 201809
